FAERS Safety Report 18777577 (Version 2)
Quarter: 2021Q2

REPORT INFORMATION
  Report Type: Spontaneous
  Country: US (occurrence: US)
  Receive Date: 20210122
  Receipt Date: 20210507
  Transmission Date: 20210717
  Serious: Yes (Life-Threatening, Hospitalization)
  Sender: FDA-Public Use
  Company Number: US-TEVA-2021-US-1869850

PATIENT
  Age: 19 Year
  Sex: Male

DRUGS (1)
  1. METFORMIN [Suspect]
     Active Substance: METFORMIN HYDROCHLORIDE
     Indication: SUICIDE ATTEMPT
     Dosage: TAKEN 360 PILLS OF 500 MG METFORMIN IN A SUICIDE ATTEMPT
     Route: 048

REACTIONS (6)
  - Acute respiratory failure [Unknown]
  - Acute kidney injury [Recovered/Resolved]
  - Toxicity to various agents [Recovering/Resolving]
  - Lactic acidosis [Recovered/Resolved]
  - Haemodynamic instability [Unknown]
  - Intentional overdose [Unknown]
